FAERS Safety Report 18761885 (Version 1)
Quarter: 2021Q1

REPORT INFORMATION
  Report Type: Spontaneous
  Country: US (occurrence: US)
  Receive Date: 20210119
  Receipt Date: 20210119
  Transmission Date: 20210419
  Serious: Yes (Other)
  Sender: FDA-Public Use
  Company Number: None

PATIENT
  Sex: Female

DRUGS (2)
  1. OXYBUTYNIN CHLORIDE ER TABS 5 MG + 10 MG [Suspect]
     Active Substance: OXYBUTYNIN CHLORIDE
  2. TROSPIUM CHLORIDE TABS 20 MG [Suspect]
     Active Substance: TROSPIUM CHLORIDE

REACTIONS (1)
  - Therapy non-responder [None]
